FAERS Safety Report 6162143-4 (Version None)
Quarter: 2009Q2

REPORT INFORMATION
  Report Type: 
  Country: None (occurrence: None)
  Receive Date: 20090421
  Receipt Date: 20090409
  Transmission Date: 20091009
  Serious: Yes (Hospitalization)
  Sender: FDA-Public Use
  Company Number: US-PFIZER INC-2007100561

PATIENT
  Sex: Female
  Weight: 60.771 kg

DRUGS (16)
  1. SUNITINIB MALATE [Suspect]
     Indication: NEOPLASM MALIGNANT
     Dosage: 25 MG, 1X/DAY
     Route: 048
     Dates: start: 20070905
  2. OXALIPLATIN [Suspect]
     Indication: NEOPLASM MALIGNANT
     Dosage: ONCE, ON DAY 1, TDD 144 MG
     Route: 042
     Dates: start: 20070905, end: 20071114
  3. FLUOROURACIL [Suspect]
     Indication: NEOPLASM MALIGNANT
     Dosage: ONCE OVER 46 HR; D1 OF EACH CYCLE
     Route: 042
     Dates: start: 20070905, end: 20071114
  4. LEUCOVORIN CALCIUM [Suspect]
     Indication: NEOPLASM MALIGNANT
     Dosage: ONCE; ON DAY 1 OF EACH CYCLE, TDD 676 MG
     Route: 042
     Dates: start: 20070905, end: 20071114
  5. TYLENOL [Concomitant]
     Route: 048
     Dates: start: 20071007
  6. NEXIUM [Concomitant]
     Dosage: 40 MG, 1X/DAY
     Route: 048
     Dates: start: 20071102
  7. HYZAAR [Concomitant]
     Dosage: 100/12.5 MG
     Route: 048
     Dates: start: 20070505
  8. NORVASC [Concomitant]
     Dosage: 5 MG, 1X/DAY
     Route: 048
     Dates: start: 20071031
  9. GELCLAIR [Concomitant]
     Dosage: 1 PACKET
     Route: 048
     Dates: start: 20070927
  10. MAGIC MOUTHWASH [Concomitant]
     Dosage: TID, QAC, PRN
     Route: 048
     Dates: start: 20070925
  11. OXYCODONE [Concomitant]
     Indication: PAIN
     Dosage: Q6HR, PRN
     Route: 048
     Dates: start: 20070919
  12. URSODIOL [Concomitant]
     Route: 048
     Dates: start: 20070811
  13. COMPAZINE [Concomitant]
     Dosage: Q6HRS, PRN
     Route: 048
     Dates: start: 20070905
  14. CALCIUM W/MAGNESIUM [Concomitant]
     Route: 048
     Dates: start: 19870101
  15. ATENOLOL [Concomitant]
     Route: 048
     Dates: start: 20030101
  16. SYNTHROID [Concomitant]
     Dosage: 88 MICROGRAM, 1X/DAY
     Route: 048
     Dates: start: 20070301

REACTIONS (1)
  - HEPATIC INFECTION BACTERIAL [None]
